FAERS Safety Report 4741697-6 (Version None)
Quarter: 2005Q3

REPORT INFORMATION
  Report Type: 
  Country: None (occurrence: None)
  Receive Date: 20050808
  Receipt Date: 20050719
  Transmission Date: 20060218
  Serious: Yes (Death)
  Sender: FDA-Public Use
  Company Number: 215904

PATIENT
  Age: 47 Year
  Sex: Female

DRUGS (14)
  1. HERCEPTIN [Suspect]
     Indication: BREAST CANCER METASTATIC
     Dosage: 300 MG, IV DRIP
     Route: 041
     Dates: start: 20050624, end: 20050624
  2. TRIHEXYPHENIDYL HCL [Concomitant]
  3. HALOPERIDOL [Concomitant]
  4. SELBEX (TEPRENONE) [Concomitant]
  5. MIDODRINE HYDROCHLORIDE (MIDODRINE HYDROCHLORIDE) [Concomitant]
  6. RISPERDAL [Concomitant]
  7. DEPAS (ETIZOLAM) [Concomitant]
  8. SENNOSIDE (SENNOSIDES) [Concomitant]
  9. ZOTEPINE (ZOTEPINE) [Concomitant]
  10. SILECE (FLUNITRAZEPAM) [Concomitant]
  11. LENDORM [Concomitant]
  12. DIAZEPAM [Concomitant]
  13. BROMISOVAL (BROMISOVALUM) [Concomitant]
  14. LACTOSE (LACTOSE) [Concomitant]

REACTIONS (16)
  - ABNORMAL BEHAVIOUR [None]
  - BLOOD POTASSIUM INCREASED [None]
  - C-REACTIVE PROTEIN INCREASED [None]
  - CYANOSIS [None]
  - DEPRESSED LEVEL OF CONSCIOUSNESS [None]
  - HAEMATOCRIT DECREASED [None]
  - HAEMOGLOBIN DECREASED [None]
  - HEPATIC FAILURE [None]
  - MALIGNANT NEOPLASM PROGRESSION [None]
  - PERIPHERAL COLDNESS [None]
  - PLATELET COUNT DECREASED [None]
  - RED BLOOD CELL COUNT DECREASED [None]
  - RENAL FAILURE [None]
  - RESPIRATORY RATE INCREASED [None]
  - THERAPY NON-RESPONDER [None]
  - WHITE BLOOD CELL COUNT INCREASED [None]
